FAERS Safety Report 13685426 (Version 1)
Quarter: 2017Q2

REPORT INFORMATION
  Report Type: Spontaneous
  Country: US (occurrence: US)
  Receive Date: 20170623
  Receipt Date: 20170623
  Transmission Date: 20170830
  Serious: No
  Sender: FDA-Public Use
  Company Number: US-INTERPRAG-PM-OCA2017-00393

PATIENT

DRUGS (6)
  1. PROPANOLOL                         /00030001/ [Concomitant]
     Active Substance: PROPRANOLOL HYDROCHLORIDE
  2. OCALIVA [Suspect]
     Active Substance: OBETICHOLIC ACID
     Indication: BILIARY CIRRHOSIS PRIMARY
     Dosage: 5 MG, QD
     Route: 048
     Dates: start: 20170411
  3. MONTELUKAST [Concomitant]
     Active Substance: MONTELUKAST SODIUM
  4. URSODIOL. [Concomitant]
     Active Substance: URSODIOL
  5. SPIRONOLACTON [Concomitant]
     Active Substance: SPIRONOLACTONE
  6. OMEPRAZOLE. [Concomitant]
     Active Substance: OMEPRAZOLE

REACTIONS (2)
  - Pruritus [Not Recovered/Not Resolved]
  - Anxiety [Not Recovered/Not Resolved]

NARRATIVE: CASE EVENT DATE: 201704
